FAERS Safety Report 5645201-X (Version None)
Quarter: 2008Q1

REPORT INFORMATION
  Report Type: 
  Country: None (occurrence: None)
  Receive Date: 20080229
  Receipt Date: 20080220
  Transmission Date: 20080703
  Serious: Yes (Hospitalization)
  Sender: FDA-Public Use
  Company Number: US-JNJFOC-20080104490

PATIENT
  Sex: Female
  Weight: 81.65 kg

DRUGS (13)
  1. RISPERDAL CONSTA [Suspect]
     Indication: SCHIZOPHRENIA
     Route: 030
  2. POTASSIUM CHLORIDE [Concomitant]
  3. POTASSIUM CHLORIDE [Concomitant]
  4. POTASSIUM CHLORIDE [Concomitant]
     Indication: HYPOKALAEMIA
  5. LEVAQUIN [Concomitant]
  6. LEVAQUIN [Concomitant]
  7. LEVAQUIN [Concomitant]
  8. LEVAQUIN [Concomitant]
  9. LEVAQUIN [Concomitant]
     Indication: URINARY TRACT INFECTION
  10. HEXAVITAMIN [Concomitant]
     Indication: ANOREXIA
     Route: 048
  11. HEXAVITAMIN [Concomitant]
     Indication: MALNUTRITION
     Route: 048
  12. BENADRYL [Concomitant]
     Indication: AGITATION
  13. ATIVAN [Concomitant]
     Indication: AGITATION

REACTIONS (4)
  - BLOOD PRESSURE DECREASED [None]
  - DEPRESSED LEVEL OF CONSCIOUSNESS [None]
  - DYSTONIA [None]
  - OXYGEN SATURATION DECREASED [None]
